FAERS Safety Report 8948276 (Version 1)
Quarter: 2012Q4

REPORT INFORMATION
  Report Type: 
  Country: US (occurrence: US)
  Receive Date: 20121206
  Receipt Date: 20121206
  Transmission Date: 20130627
  Serious: Yes (Death)
  Sender: FDA-Public Use
  Company Number: PHEH2012US020255

PATIENT
  Age: 68 Year
  Sex: Female

DRUGS (2)
  1. GLEEVEC [Suspect]
     Indication: GASTROINTESTINAL CARCINOMA
     Dosage: 400 mg, Daily
     Route: 048
     Dates: start: 20120915, end: 20121008
  2. GLEEVEC [Suspect]
     Dosage: 400 mg, Daily
     Route: 048

REACTIONS (2)
  - Death [Fatal]
  - Rash [Recovered/Resolved]
